FAERS Safety Report 24389806 (Version 3)
Quarter: 2024Q4

REPORT INFORMATION
  Report Type: Spontaneous
  Country: CN (occurrence: CN)
  Receive Date: 20241003
  Receipt Date: 20241029
  Transmission Date: 20250115
  Serious: Yes (Other)
  Sender: ACCORD
  Company Number: CN-Accord-448384

PATIENT
  Age: 53 Year
  Sex: Female
  Weight: 49 kg

DRUGS (2)
  1. PACLITAXEL [Suspect]
     Active Substance: PACLITAXEL
     Indication: Ovarian cancer
     Dosage: 240 MG ON DAY 1 WITH A 3-WEEK CYCLE LENGTH, DOSE WAS REDUCED TO 180 MG (135 MG/M2)
     Route: 042
     Dates: start: 202208, end: 202208
  2. CARBOPLATIN [Concomitant]
     Active Substance: CARBOPLATIN
     Indication: Ovarian cancer stage II
     Dosage: 474 MG (175 MG/M2) ON DAY 1 WITH A 3-WEEK CYCLE LENGTH
     Dates: start: 202208

REACTIONS (1)
  - Drug-induced liver injury [Recovered/Resolved]

NARRATIVE: CASE EVENT DATE: 20220101
